FAERS Safety Report 6835720-2 (Version None)
Quarter: 2010Q3

REPORT INFORMATION
  Report Type: 
  Country: None (occurrence: None)
  Receive Date: 20100713
  Receipt Date: 20100701
  Transmission Date: 20110219
  Serious: Yes (Hospitalization, Other)
  Sender: FDA-Public Use
  Company Number: US-PFIZER INC-2010082539

PATIENT
  Sex: Female

DRUGS (6)
  1. XANAX [Suspect]
     Indication: ANXIETY
     Dosage: UNK
  2. TAMOXIFEN [Suspect]
     Dosage: UNK
  3. IBUPROFEN [Suspect]
     Indication: PAIN
     Dosage: UNK
  4. CARBOPLATIN [Suspect]
     Dosage: UNK
  5. TAXOL [Suspect]
     Dosage: UNK
  6. MEGESTROL [Suspect]
     Dosage: UNK

REACTIONS (10)
  - DRUG INEFFECTIVE [None]
  - ENDOMETRIAL CANCER [None]
  - ENDOMETRIAL CANCER METASTATIC [None]
  - FEELING ABNORMAL [None]
  - FEELING COLD [None]
  - HYPOACUSIS [None]
  - MENOPAUSAL SYMPTOMS [None]
  - NAIL DISORDER [None]
  - PNEUMONITIS [None]
  - SOMNOLENCE [None]
